FAERS Safety Report 8990590 (Version 1)
Quarter: 2012Q4

REPORT INFORMATION
  Report Type: 
  Country: JP (occurrence: JP)
  Receive Date: 20121228
  Receipt Date: 20121228
  Transmission Date: 20130627
  Serious: Yes (Other)
  Sender: FDA-Public Use
  Company Number: JP-PFIZER INC-2012326367

PATIENT
  Age: 59 Year
  Sex: Male

DRUGS (1)
  1. CISPLATIN [Suspect]
     Indication: NASOPHARYNGEAL CANCER
     Dosage: 40 mg/m2, weekly
     Dates: start: 200207

REACTIONS (7)
  - Dermatitis [Unknown]
  - Leukopenia [Unknown]
  - Anaemia [Unknown]
  - Thrombocytopenia [Unknown]
  - Dysphagia [Unknown]
  - Pharyngitis [Unknown]
  - Weight decreased [Unknown]
